FAERS Safety Report 4702502-7 (Version None)
Quarter: 2005Q2

REPORT INFORMATION
  Report Type: 
  Country: None (occurrence: None)
  Receive Date: 20050621
  Receipt Date: 20050607
  Transmission Date: 20051028
  Serious: Yes (Other)
  Sender: FDA-Public Use
  Company Number: HQWYE881723MAY05

PATIENT
  Age: 13 Month
  Sex: Male

DRUGS (1)
  1. BENEFIX [Suspect]
     Indication: FACTOR IX DEFICIENCY
     Dosage: 250 IU EVERY SECOND DAY; TOTAL OF 8 EXPOSURE DAYS
     Dates: start: 20050503, end: 20050512

REACTIONS (5)
  - ACIDOSIS [None]
  - ANAPHYLACTIC REACTION [None]
  - HAEMOLYSIS [None]
  - HAEMORRHAGE [None]
  - HYPERSENSITIVITY [None]
